FAERS Safety Report 15677908 (Version 2)
Quarter: 2018Q4

REPORT INFORMATION
  Report Type: Spontaneous
  Country: CN (occurrence: CN)
  Receive Date: 20181130
  Receipt Date: 20181217
  Transmission Date: 20190205
  Serious: Yes (Hospitalization, Other)
  Sender: FDA-Public Use
  Company Number: CN-GILEAD-2018-0377653

PATIENT
  Age: 62 Year
  Sex: Male

DRUGS (2)
  1. HEPSERA [Suspect]
     Active Substance: ADEFOVIR DIPIVOXIL
     Indication: CHRONIC HEPATITIS B
     Dosage: 10 MG, QD
     Route: 048
  2. LOTENSIN [Suspect]
     Active Substance: BENAZEPRIL HYDROCHLORIDE
     Indication: HYPERTENSION
     Dosage: UNK DF
     Route: 048

REACTIONS (5)
  - Hypertension [Recovering/Resolving]
  - Weight increased [Not Recovered/Not Resolved]
  - Hepatic cancer [Unknown]
  - Blood phosphorus decreased [Not Recovered/Not Resolved]
  - Carotid arteriosclerosis [Unknown]

NARRATIVE: CASE EVENT DATE: 201805
